FAERS Safety Report 20395888 (Version 1)
Quarter: 2022Q1

REPORT INFORMATION
  Report Type: Spontaneous
  Country: US (occurrence: US)
  Receive Date: 20220130
  Receipt Date: 20220130
  Transmission Date: 20220423
  Serious: Yes (Other)
  Sender: FDA-Public Use
  Company Number: US-PURDUE-USA-2021-0271791

PATIENT
  Sex: Male

DRUGS (2)
  1. OXYCONTIN [Suspect]
     Active Substance: OXYCODONE HYDROCHLORIDE
     Indication: Product used for unknown indication
     Dosage: 30 MG WITH AN UNKNOWN FREQUENCY 150 QUANTITY, THEN 60 QUANTITY, THEN 120 QUANTITY PER MONTH
     Route: 048
     Dates: start: 2000
  2. OXYCONTIN [Suspect]
     Active Substance: OXYCODONE HYDROCHLORIDE
     Dosage: 80 MG WITH AN UNKNOWN FREQUENCY, 240 QUANTITY PER MONTH
     Route: 048
     Dates: start: 2000

REACTIONS (2)
  - Drug dependence [Unknown]
  - Drug abuse [Unknown]
